FAERS Safety Report 9118442 (Version 1)
Quarter: 2013Q1

REPORT INFORMATION
  Report Type: Spontaneous
  Country: US (occurrence: US)
  Receive Date: 20130219
  Receipt Date: 20130219
  Transmission Date: 20140127
  Serious: No
  Sender: FDA-Public Use
  Company Number: US-BRISTOL-MYERS SQUIBB COMPANY-17162223

PATIENT
  Age: 54 Year
  Sex: Female
  Weight: 58.96 kg

DRUGS (12)
  1. ORENCIA FOR INJ [Suspect]
     Dosage: 1DF=125MG/1ML.FORMULATION-ORENCIA 125MG/ML PFS (4 PACK)
     Route: 058
  2. CALTRATE WITH VITAMIN D [Concomitant]
     Dosage: FORMULATION-CALTRATE + D TAB 600-800
  3. ZOLOFT [Concomitant]
     Dosage: ZOLOFT TAB 25MG
  4. METHOTREXATE TABS [Concomitant]
     Dosage: FORMULATION-METHOTREXATE TAB 2.5MG
  5. CARDIZEM CD [Concomitant]
     Dosage: FORMULATION-CARDIZEM CD 120MG/24
  6. CLONAZEPAM [Concomitant]
     Dosage: FORMULATION-CLONAZEPAM TAB 1MG
  7. SIMVASTATIN TAB [Concomitant]
  8. WELLBUTRIN [Concomitant]
     Dosage: FORMULATION-WELLBUTRIN TAB 100MG
  9. ZESTRIL [Concomitant]
     Dosage: FORMULATION-ZESTRIL TAB 10MG
  10. IBUPROFEN [Concomitant]
     Dosage: FORMULATION-IBUPROFEN CAP 200MG
  11. FOLIC ACID [Concomitant]
     Dosage: FOLIC ACID TAB
  12. ASPIRIN [Concomitant]
     Dosage: TAB

REACTIONS (1)
  - Hot flush [Unknown]
